FAERS Safety Report 15033548 (Version 3)
Quarter: 2018Q3

REPORT INFORMATION
  Report Type: Not Available
  Country: US (occurrence: US)
  Receive Date: 20180619
  Receipt Date: 20180921
  Transmission Date: 20181010
  Serious: No
  Sender: FDA-Public Use
  Company Number: US-NEUROCRINE BIOSCIENCES INC.-2018NBI01756

PATIENT
  Sex: Male

DRUGS (1)
  1. INGREZZA [Suspect]
     Active Substance: VALBENAZINE
     Indication: PRODUCT USED FOR UNKNOWN INDICATION
     Route: 048
     Dates: start: 20180307

REACTIONS (6)
  - Dizziness [Unknown]
  - Tremor [Unknown]
  - Memory impairment [Unknown]
  - Fall [Unknown]
  - Dyskinesia [Unknown]
  - Reduced facial expression [Unknown]

NARRATIVE: CASE EVENT DATE: 2018
